FAERS Safety Report 5751017-6 (Version None)
Quarter: 2008Q2

REPORT INFORMATION
  Report Type: 
  Country: None (occurrence: None)
  Receive Date: 20080528
  Receipt Date: 20080519
  Transmission Date: 20081010
  Serious: Yes (Hospitalization)
  Sender: FDA-Public Use
  Company Number: US-ABBOTT-08P-163-0452274-00

PATIENT
  Sex: Male
  Weight: 91.708 kg

DRUGS (6)
  1. COATED PDS [Suspect]
     Indication: BLOOD CHOLESTEROL INCREASED
     Dosage: 500MG DAILY, PINK
     Route: 048
     Dates: start: 20080506, end: 20080517
  2. COATED PDS [Suspect]
     Dosage: 500MG DAILY, WHITE
     Route: 048
     Dates: start: 20080423, end: 20080505
  3. EZETIMIBE [Suspect]
     Indication: BLOOD CHOLESTEROL INCREASED
     Dosage: 10 MG DAILY
     Route: 048
     Dates: end: 20080517
  4. LEVOTHYROXINE SODIUM [Concomitant]
     Indication: THYROIDECTOMY
     Dosage: 150 MG DAILY
     Route: 048
     Dates: start: 20060101
  5. AMLODIPINE [Concomitant]
     Indication: HYPERTENSION
     Dosage: 5 MG DAILY
     Route: 048
  6. RABEPRAZOLE SODIUM [Concomitant]
     Indication: GASTROOESOPHAGEAL REFLUX DISEASE
     Dosage: 20 MG DAILY
     Route: 048

REACTIONS (4)
  - BODY TEMPERATURE DECREASED [None]
  - BURNING SENSATION [None]
  - GENERALISED ERYTHEMA [None]
  - HYPOTENSION [None]
